FAERS Safety Report 5177503-8 (Version None)
Quarter: 2006Q4

REPORT INFORMATION
  Report Type: 
  Country: None (occurrence: None)
  Receive Date: 20061218
  Receipt Date: 20060905
  Transmission Date: 20070319
  Serious: Yes (Hospitalization)
  Sender: FDA-Public Use
  Company Number: US-ELI_LILLY_AND_COMPANY-US200609001092

PATIENT
  Age: 37 Year
  Sex: Female

DRUGS (4)
  1. FORTEO [Suspect]
     Indication: BLOOD CALCIUM DECREASED
     Dosage: 20 UG, 2/D
     Route: 058
     Dates: start: 20060817
  2. FORTEO [Suspect]
     Dosage: 20 UG, DAILY (1/D)
     Route: 058
     Dates: start: 20060101
  3. ROCALTROL [Concomitant]
     Indication: BLOOD CALCIUM DECREASED
     Dosage: UNK, UNK
     Dates: end: 20060101
  4. VITAMIN D [Concomitant]
     Dosage: 500000 IU, WEEKLY (1/W)

REACTIONS (7)
  - BLOOD CALCIUM DECREASED [None]
  - BONE PAIN [None]
  - MEDICATION ERROR [None]
  - MUSCLE SPASMS [None]
  - OFF LABEL USE [None]
  - PRESCRIBED OVERDOSE [None]
  - TETANY [None]
